FAERS Safety Report 4587026-2 (Version None)
Quarter: 2005Q1

REPORT INFORMATION
  Report Type: 
  Country: None (occurrence: None)
  Receive Date: 20050218
  Receipt Date: 20050114
  Transmission Date: 20050727
  Serious: Yes (Hospitalization)
  Sender: FDA-Public Use
  Company Number: SE-MERCK-0501SWE00015

PATIENT
  Age: 52 Year
  Sex: Female

DRUGS (2)
  1. VIOXX [Suspect]
     Indication: OSTEOARTHRITIS
     Route: 048
     Dates: start: 20040203, end: 20041029
  2. PROPOXYPHENE NAPSYLATE [Concomitant]
     Route: 065

REACTIONS (3)
  - CHEST DISCOMFORT [None]
  - HEADACHE [None]
  - HYPERTENSION [None]
